FAERS Safety Report 14613862 (Version 1)
Quarter: 2018Q1

REPORT INFORMATION
  Report Type: Spontaneous
  Country: GB (occurrence: GB)
  Receive Date: 20180308
  Receipt Date: 20180308
  Transmission Date: 20180509
  Serious: Yes (Hospitalization, Other)
  Sender: FDA-Public Use
  Company Number: GB-ASTRAZENECA-2018SE26404

PATIENT
  Age: 83 Year
  Sex: Female
  Weight: 73 kg

DRUGS (13)
  1. AMITRIPTYLINE HYDROCHLORIDE. [Concomitant]
     Active Substance: AMITRIPTYLINE HYDROCHLORIDE
     Dates: start: 20060418
  2. HYPROMELLOSE [Concomitant]
     Active Substance: HYPROMELLOSES
     Dosage: 1 GTT INTO THE AFFECTED EYE(S)
     Dates: start: 20170307
  3. LOSARTAN. [Concomitant]
     Active Substance: LOSARTAN
     Dates: start: 20141002
  4. BENDROFLUMETHIAZIDE [Concomitant]
     Active Substance: BENDROFLUMETHIAZIDE
     Indication: HYPERTENSION
     Dosage: MILD WATER TABLET
     Dates: start: 20071220
  5. ATENOLOL. [Concomitant]
     Active Substance: ATENOLOL
     Dates: start: 20150223
  6. MELOXICAM. [Concomitant]
     Active Substance: MELOXICAM
     Dates: start: 20140515
  7. MAGNESIUM HYDROXIDE. [Concomitant]
     Active Substance: MAGNESIUM HYDROXIDE
     Dosage: 5 ML SPOON
     Dates: start: 20140306
  8. AMLODIPINE [Concomitant]
     Active Substance: AMLODIPINE BESYLATE
     Indication: HYPERTENSION
     Dates: start: 20150223
  9. FYBOGEL [Concomitant]
     Active Substance: PLANTAGO OVATA SEED
     Dates: start: 20060707
  10. COCODAMOL [Concomitant]
     Active Substance: ACETAMINOPHEN\CODEINE PHOSPHATE
     Indication: PAIN
     Dosage: TAKE 1 OR 2 MAX 4 TIMES/DAY
     Dates: start: 20170307
  11. OMEPRAZOLE. [Suspect]
     Active Substance: OMEPRAZOLE
     Route: 048
     Dates: start: 20090406
  12. PRAVASTATIN. [Concomitant]
     Active Substance: PRAVASTATIN
     Indication: HYPERCHOLESTEROLAEMIA
     Dates: start: 20160411
  13. FEXOFENADINE [Concomitant]
     Active Substance: FEXOFENADINE\FEXOFENADINE HYDROCHLORIDE
     Dates: start: 20140424

REACTIONS (3)
  - Muscle spasms [Recovering/Resolving]
  - Pain in jaw [Recovering/Resolving]
  - Hypocalcaemia [Recovering/Resolving]

NARRATIVE: CASE EVENT DATE: 20180208
